FAERS Safety Report 10206909 (Version 1)
Quarter: 2014Q2

REPORT INFORMATION
  Report Type: Spontaneous
  Country: US (occurrence: None)
  Receive Date: 20140528
  Receipt Date: 20140528
  Transmission Date: 20141212
  Serious: Yes (Hospitalization, Disabling)
  Sender: FDA-Public Use
  Company Number: None

PATIENT
  Age: 67 Year
  Sex: Male
  Weight: 72.7 kg

DRUGS (2)
  1. AVASTIN [Suspect]
     Indication: COLORECTAL CANCER METASTATIC
     Dosage: EVERY 2 WEEKS IV
     Route: 042
     Dates: start: 20140131
  2. FOLFIRI CHEMOTHERAPY [Suspect]
     Route: 042

REACTIONS (3)
  - Ischaemic cerebral infarction [None]
  - Cerebrovascular accident [None]
  - VIIth nerve paralysis [None]
